FAERS Safety Report 9300786 (Version 1)
Quarter: 2013Q2

REPORT INFORMATION
  Report Type: Spontaneous
  Country: BE (occurrence: BE)
  Receive Date: 20130521
  Receipt Date: 20130521
  Transmission Date: 20140414
  Serious: Yes (Hospitalization)
  Sender: FDA-Public Use
  Company Number: BE-PFIZER INC-2013148857

PATIENT
  Age: 3 Year
  Sex: Female
  Weight: 12.2 kg

DRUGS (2)
  1. ZITROMAX [Suspect]
     Indication: GASTROENTERITIS
     Dosage: 15 ML, 1X/DAY
     Route: 048
     Dates: start: 20130227, end: 20130301
  2. ZITROMAX [Suspect]
     Indication: PYREXIA

REACTIONS (1)
  - Nephrotic syndrome [Recovered/Resolved]
